FAERS Safety Report 5359466-5 (Version None)
Quarter: 2007Q2

REPORT INFORMATION
  Report Type: 
  Country: None (occurrence: None)
  Receive Date: 20070615
  Receipt Date: 20070604
  Transmission Date: 20071010
  Serious: Yes (Other)
  Sender: FDA-Public Use
  Company Number: TR-PFIZER INC-2007046106

PATIENT
  Sex: Female

DRUGS (2)
  1. ZIPRASIDONE (CAPS) [Suspect]
     Indication: BIPOLAR DISORDER
     Route: 048
  2. LORAZEPAM [Concomitant]
     Route: 048

REACTIONS (2)
  - LARYNGOSPASM [None]
  - OCULOGYRATION [None]
